FAERS Safety Report 12967331 (Version 4)
Quarter: 2020Q1

REPORT INFORMATION
  Report Type: Spontaneous
  Country: US (occurrence: US)
  Receive Date: 20161123
  Receipt Date: 20200114
  Transmission Date: 20200409
  Serious: Yes (Death, Hospitalization, Other)
  Sender: FDA-Public Use
  Company Number: US-PFIZER INC-2015382603

PATIENT
  Age: 86 Year
  Sex: Female
  Weight: 68 kg

DRUGS (23)
  1. LEVOTHYROXINE SODIUM. [Concomitant]
     Active Substance: LEVOTHYROXINE SODIUM
     Dosage: 125 UG, 1X/DAY
     Route: 048
  2. REVATIO [Suspect]
     Active Substance: SILDENAFIL CITRATE
     Dosage: 2 DF, 3X/DAY
  3. JANUVIA [Concomitant]
     Active Substance: SITAGLIPTIN PHOSPHATE
     Dosage: 25 MG, 1X/DAY
  4. MULTAQ [Concomitant]
     Active Substance: DRONEDARONE
     Dosage: 400 MG, 2X/DAY (WITH FOOD)
     Route: 048
  5. TORSEMIDE. [Concomitant]
     Active Substance: TORSEMIDE
     Indication: POLYURIA
     Dosage: 20 MG, 1X/DAY (EVERY MORNING)
     Route: 048
  6. XANAX [Concomitant]
     Active Substance: ALPRAZOLAM
     Dosage: 0.25 MG, UNK (AS DIRECTED)
     Route: 048
  7. REVATIO [Suspect]
     Active Substance: SILDENAFIL CITRATE
     Indication: PULMONARY ARTERIAL HYPERTENSION
     Dosage: 60 MG, 3X/DAY (20 MG, 3 TABS BY MOUTH 3 TIMES DAILY)
     Route: 048
     Dates: start: 2010
  8. REVATIO [Suspect]
     Active Substance: SILDENAFIL CITRATE
     Indication: CARDIAC DISORDER
     Dosage: 20 MG, 3X/DAY
     Dates: start: 2012
  9. PANTOPRAZOLE SODIUM. [Concomitant]
     Active Substance: PANTOPRAZOLE SODIUM
     Dosage: 40 MG, 1X/DAY
     Route: 048
  10. ULORIC [Concomitant]
     Active Substance: FEBUXOSTAT
     Dosage: 80 MG, 1X/DAY
     Route: 048
  11. WARFARIN SODIUM. [Concomitant]
     Active Substance: WARFARIN SODIUM
     Dosage: 2.5 MG, UNK (MG ONE TABLET BY MOUTH ON SUN-WED-FRI AND 2 TABLETS)
     Route: 048
  12. TORSEMIDE. [Concomitant]
     Active Substance: TORSEMIDE
     Dosage: 60 MG, DAILY
     Route: 048
  13. MONTELUKAST SODIUM. [Concomitant]
     Active Substance: MONTELUKAST SODIUM
     Dosage: 10 MG, 1X/DAY
  14. STOOL SOFTENER (DOCUSATE) [Concomitant]
     Active Substance: DOCUSATE
     Dosage: 100 MG, 2X/DAY
  15. TRACLEER [Concomitant]
     Active Substance: BOSENTAN
     Indication: PULMONARY HYPERTENSION
     Dosage: 125 MG, 2X/DAY
     Route: 048
  16. DILTIAZEM HCL [Concomitant]
     Active Substance: DILTIAZEM HYDROCHLORIDE
     Dosage: 120 MG, 1X/DAY
     Route: 048
  17. LEVEMIR [Concomitant]
     Active Substance: INSULIN DETEMIR
     Dosage: 100 IU, UNK (AS DIRECTED)
  18. DILT-XR [Concomitant]
     Active Substance: DILTIAZEM
     Dosage: 120 MG, 1X/DAY (EVERY MORNING)
     Route: 048
  19. SPIRONOLACTONE. [Concomitant]
     Active Substance: SPIRONOLACTONE
     Dosage: 25 MG, UNK (1 TABLET BY MOUTH 30 TO 60 MINUTES PRIOR TO TORSE)
     Route: 048
  20. TRACLEER [Concomitant]
     Active Substance: BOSENTAN
     Indication: CARDIAC DISORDER
  21. VYTORIN [Concomitant]
     Active Substance: EZETIMIBE\SIMVASTATIN
     Dosage: 10-40 MG EVERY NIGHT AT BEDTIME
     Route: 048
  22. METOPROLOL SUCCINATE. [Concomitant]
     Active Substance: METOPROLOL SUCCINATE
     Dosage: 100 MG, 1X/DAY (1.5 TABLETS BY MOUTH EVERY NIGHT AT BEDTIME)
     Route: 048
  23. LASIX [Concomitant]
     Active Substance: FUROSEMIDE
     Dosage: UNK
     Route: 042

REACTIONS (6)
  - Off label use [Unknown]
  - Respiratory tract infection [Not Recovered/Not Resolved]
  - Bronchitis [Recovered/Resolved]
  - Product use issue [Unknown]
  - Death [Fatal]
  - Pleural effusion [Unknown]

NARRATIVE: CASE EVENT DATE: 20180207
